FAERS Safety Report 7905157-3 (Version None)
Quarter: 2011Q4

REPORT INFORMATION
  Report Type: 
  Country: None (occurrence: None)
  Receive Date: 20111109
  Receipt Date: 20111107
  Transmission Date: 20120403
  Serious: Yes (Hospitalization)
  Sender: FDA-Public Use
  Company Number: US-BAYER-2011-067713

PATIENT
  Age: 39 Year
  Sex: Female
  Weight: 55.782 kg

DRUGS (1)
  1. MIRENA [Suspect]
     Indication: CONTRACEPTION
     Dosage: 20 ?G, CONT
     Route: 015
     Dates: start: 20060601, end: 20110728

REACTIONS (2)
  - DEVICE DISLOCATION [None]
  - DEVICE DIFFICULT TO USE [None]
